FAERS Safety Report 9698070 (Version 5)
Quarter: 2014Q3

REPORT INFORMATION
  Report Type: Spontaneous
  Country: US (occurrence: US)
  Receive Date: 20131120
  Receipt Date: 20140801
  Transmission Date: 20150326
  Serious: Yes (Life-Threatening, Hospitalization, Other)
  Sender: FDA-Public Use
  Company Number: US-BAYER-2013-139624

PATIENT
  Age: 32 Year
  Sex: Female
  Weight: 49.89 kg

DRUGS (3)
  1. KLONOPIN [Concomitant]
     Active Substance: CLONAZEPAM
     Indication: ANXIETY
  2. MIRENA [Suspect]
     Active Substance: LEVONORGESTREL
     Indication: CONTRACEPTION
     Dosage: 20 MCG/24HR, CONT
     Route: 015
     Dates: start: 20111006, end: 20130108
  3. KLONOPIN [Concomitant]
     Active Substance: CLONAZEPAM
     Indication: PANIC DISORDER
     Dosage: 0.5 MG, UNK

REACTIONS (21)
  - Abdominal pain lower [None]
  - Weight decreased [None]
  - Device issue [None]
  - Pain [None]
  - Onychomalacia [None]
  - General physical health deterioration [None]
  - Asthenia [None]
  - Embedded device [None]
  - Injury [None]
  - Anxiety [None]
  - Anhedonia [None]
  - Alopecia [None]
  - Medication error [None]
  - Depression [None]
  - Restless legs syndrome [None]
  - Abasia [None]
  - Off label use [None]
  - Genital haemorrhage [None]
  - Emotional distress [None]
  - Vomiting [None]
  - Panic attack [None]

NARRATIVE: CASE EVENT DATE: 201112
